FAERS Safety Report 26152980 (Version 1)
Quarter: 2025Q4

REPORT INFORMATION
  Report Type: Spontaneous
  Country: US (occurrence: US)
  Receive Date: 20251214
  Receipt Date: 20251214
  Transmission Date: 20260117
  Serious: No
  Sender: TEIKOKU
  Company Number: US-TPU-TPU-2025-00617

PATIENT
  Sex: Female

DRUGS (6)
  1. LIDOCAINE PATCH [Suspect]
     Active Substance: LIDOCAINE
     Indication: Neuropathy peripheral
  2. LIDOCAINE PATCH [Suspect]
     Active Substance: LIDOCAINE
     Indication: Nerve injury
  3. LIDODERM [Suspect]
     Active Substance: LIDOCAINE
     Indication: Neuropathy peripheral
  4. LIDODERM [Suspect]
     Active Substance: LIDOCAINE
     Indication: Nerve injury
  5. SUBOXONE [Suspect]
     Active Substance: BUPRENORPHINE HYDROCHLORIDE\NALOXONE HYDROCHLORIDE
     Indication: Product used for unknown indication
  6. ZYRTEC [Concomitant]
     Active Substance: CETIRIZINE HYDROCHLORIDE
     Indication: Pruritus

REACTIONS (5)
  - Application site rash [Unknown]
  - Shoulder operation [Unknown]
  - Intervertebral disc operation [Unknown]
  - Neck surgery [Unknown]
  - Herpes zoster [Unknown]
